FAERS Safety Report 16937548 (Version 1)
Quarter: 2019Q4

REPORT INFORMATION
  Report Type: Spontaneous
  Country: ES (occurrence: ES)
  Receive Date: 20191018
  Receipt Date: 20191018
  Transmission Date: 20200122
  Serious: Yes (Other)
  Sender: FDA-Public Use
  Company Number: NVSC2019ES004432

PATIENT
  Age: 60 Year
  Sex: Male
  Weight: 81.7 kg

DRUGS (1)
  1. ATORVASTATIN [Suspect]
     Active Substance: ATORVASTATIN
     Indication: MYOCARDIAL INFARCTION
     Dosage: 20 MG, QD
     Route: 065

REACTIONS (4)
  - Myalgia [Unknown]
  - Rhabdomyolysis [Unknown]
  - Haematuria [Unknown]
  - Product use in unapproved indication [Unknown]
